FAERS Safety Report 8624444-7 (Version None)
Quarter: 2012Q3

REPORT INFORMATION
  Report Type: 
  Country: None (occurrence: None)
  Receive Date: 20120827
  Receipt Date: 20120821
  Transmission Date: 20120928
  Serious: Yes (Congenital Anomaly, Other)
  Sender: FDA-Public Use
  Company Number: BR-PFIZER INC-2012207609

PATIENT
  Sex: Male

DRUGS (1)
  1. PROVERA [Suspect]
     Indication: AMENORRHOEA
     Dosage: 5 MG, PER DAY
     Route: 064
     Dates: start: 20040101, end: 20040101

REACTIONS (8)
  - MATERNAL EXPOSURE TIMING UNSPECIFIED [None]
  - PREMATURE BABY [None]
  - ASTHMA [None]
  - BRONCHITIS [None]
  - OBESITY [None]
  - BONE DEVELOPMENT ABNORMAL [None]
  - CRYPTORCHISM [None]
  - ANAEMIA [None]
